FAERS Safety Report 23722259 (Version 1)
Quarter: 2024Q2

REPORT INFORMATION
  Report Type: Spontaneous
  Country: AT (occurrence: AT)
  Receive Date: 20240409
  Receipt Date: 20240409
  Transmission Date: 20240716
  Serious: Yes (Death)
  Sender: FDA-Public Use
  Company Number: AT-002147023-NVSC2023AT280427

PATIENT

DRUGS (1)
  1. RUXOLITINIB [Suspect]
     Active Substance: RUXOLITINIB
     Indication: Haemophagocytic lymphohistiocytosis
     Dosage: 10 MG, BID (1-0-1)
     Route: 065
     Dates: start: 20231127

REACTIONS (2)
  - Death [Fatal]
  - Off label use [Unknown]
